FAERS Safety Report 4432834-1 (Version None)
Quarter: 2004Q3

REPORT INFORMATION
  Report Type: 
  Country: None (occurrence: None)
  Receive Date: 20040726
  Receipt Date: 20040518
  Transmission Date: 20050211
  Serious: No
  Sender: FDA-Public Use
  Company Number: USA040567885

PATIENT
  Age: 56 Year
  Sex: Female
  Weight: 46 kg

DRUGS (4)
  1. FORTEO [Suspect]
     Indication: OSTEOPOROSIS
     Dosage: 20 UG/1 DAY
     Dates: start: 20040429
  2. LEVBID (HYOSCYAMINE SULFATE) [Concomitant]
  3. TUMS (CALCIUM CARBONATE) [Concomitant]
  4. VITAMIN CAP [Concomitant]

REACTIONS (4)
  - BACK PAIN [None]
  - FEELING ABNORMAL [None]
  - FEELING HOT [None]
  - PAIN [None]
